FAERS Safety Report 7180046 (Version 5)
Quarter: 2013Q4

REPORT INFORMATION
  Report Type: Spontaneous
  Country: US (occurrence: US)
  Receive Date: 20091118
  Receipt Date: 20131126
  Transmission Date: 20140711
  Serious: Yes (Other)
  Sender: FDA-Public Use
  Company Number: US-BAYER-200938742NA

PATIENT
  Age: 17 Year
  Sex: Female

DRUGS (4)
  1. YAZ [Suspect]
     Dosage: 1 DF (DAILY DOSE), QD, ORAL
     Route: 048
     Dates: start: 2005, end: 200812
  2. AMOXICILLIN [Concomitant]
     Indication: BRONCHITIS
     Dosage: UNK
     Dates: start: 200812
  3. MULTIVITAMINS WITH MINERALS [Concomitant]
  4. NITROFURANTOIN [Concomitant]

REACTIONS (3)
  - Pancreatitis [None]
  - Cholecystitis chronic [None]
  - Gallbladder cholesterolosis [None]
